FAERS Safety Report 7310484-7 (Version None)
Quarter: 2011Q1

REPORT INFORMATION
  Report Type: 
  Country: None (occurrence: None)
  Receive Date: 20110224
  Receipt Date: 20101014
  Transmission Date: 20110831
  Serious: No
  Sender: FDA-Public Use
  Company Number: US-BRISTOL-MYERS SQUIBB COMPANY-15335045

PATIENT
  Age: 68 Year
  Sex: Female

DRUGS (2)
  1. METFORMIN HCL [Suspect]
     Indication: DIABETES MELLITUS
  2. GLIMEPIRIDE [Suspect]
     Indication: DIABETES MELLITUS

REACTIONS (1)
  - RENAL DISORDER [None]
